FAERS Safety Report 5052998-9 (Version None)
Quarter: 2006Q3

REPORT INFORMATION
  Report Type: 
  Country: None (occurrence: None)
  Receive Date: 20060711
  Receipt Date: 20060619
  Transmission Date: 20061208
  Serious: Yes (Hospitalization)
  Sender: FDA-Public Use
  Company Number: DE200511000181

PATIENT
  Age: 15 Year
  Sex: Female
  Weight: 59.013 kg

DRUGS (1)
  1. STRATTERA [Suspect]
     Indication: ATTENTION DEFICIT/HYPERACTIVITY DISORDER
     Dosage: 25 MG DAILY (1/D) ORAL
     Route: 048
     Dates: start: 20050824

REACTIONS (5)
  - AGGRESSION [None]
  - AGITATION [None]
  - INSOMNIA [None]
  - MOOD ALTERED [None]
  - NO THERAPEUTIC RESPONSE [None]
